FAERS Safety Report 21399163 (Version 1)
Quarter: 2022Q4

REPORT INFORMATION
  Report Type: Spontaneous
  Country: CN (occurrence: CN)
  Receive Date: 20221001
  Receipt Date: 20221001
  Transmission Date: 20230113
  Serious: Yes (Hospitalization)
  Sender: FDA-Public Use
  Company Number: None

PATIENT
  Age: 36 Year
  Sex: Female
  Weight: 46 kg

DRUGS (7)
  1. OLANZAPINE [Suspect]
     Active Substance: OLANZAPINE
     Indication: Somatic symptom disorder
     Dosage: 2.5MG,QD, EVERY NIGHT
     Route: 048
     Dates: start: 20220908, end: 20220919
  2. PIPERACILLIN SODIUM\TAZOBACTAM SODIUM [Suspect]
     Active Substance: PIPERACILLIN SODIUM\TAZOBACTAM SODIUM
     Indication: Pelvic inflammatory disease
     Dosage: 4.5G,BID
     Route: 041
     Dates: start: 20220907, end: 20220916
  3. CEFOTAXIME SODIUM [Suspect]
     Active Substance: CEFOTAXIME SODIUM
     Indication: Pelvic inflammatory disease
     Dosage: 2G,TID
     Route: 041
     Dates: start: 20220916, end: 20220921
  4. DICLOFENAC SODIUM [Concomitant]
     Active Substance: DICLOFENAC SODIUM
     Indication: Abdominal pain lower
     Dosage: 50MG,QD
     Route: 054
     Dates: start: 20220908, end: 20220912
  5. DOXYCYCLINE HYDROCHLORIDE [Concomitant]
     Active Substance: DOXYCYCLINE HYDROCHLORIDE
     Indication: Pelvic inflammatory disease
     Dosage: 0.1 G TWICE DAILY
     Route: 048
     Dates: start: 20220916, end: 20220921
  6. ESCITALOPRAM OXALATE [Concomitant]
     Active Substance: ESCITALOPRAM OXALATE
     Indication: Somatic symptom disorder
     Dosage: 10MG,BID
     Route: 048
     Dates: start: 20220908, end: 20220922
  7. PHLOROGLUCINOL [Concomitant]
     Active Substance: PHLOROGLUCINOL
     Indication: Abdominal pain lower
     Dosage: 80MG,QD
     Route: 041
     Dates: start: 20220907, end: 20220914

REACTIONS (4)
  - White blood cell count decreased [Recovering/Resolving]
  - Pyrexia [Recovering/Resolving]
  - Eyelid oedema [Recovering/Resolving]
  - Face oedema [Recovering/Resolving]

NARRATIVE: CASE EVENT DATE: 20220916
